FAERS Safety Report 4412525-3 (Version None)
Quarter: 2004Q2

REPORT INFORMATION
  Report Type: 
  Country: None (occurrence: None)
  Receive Date: 20040630
  Receipt Date: 20040405
  Transmission Date: 20050107
  Serious: No
  Sender: FDA-Public Use
  Company Number: 04P-163-0255974-00

PATIENT
  Age: 62 Year
  Sex: Female
  Weight: 88.4514 kg

DRUGS (11)
  1. HUMIRA [Suspect]
     Indication: RHEUMATOID ARTHRITIS
     Dosage: 40 MG, 1 IN 2 WK, SUBCUTANEOUS
     Route: 058
     Dates: start: 20040320, end: 20040320
  2. HYDROCODONE [Suspect]
     Indication: PAIN
     Dates: start: 20040322
  3. CELECOXIB [Concomitant]
  4. OMEPRAZOLE [Concomitant]
  5. THYROID TAB [Concomitant]
  6. FOLIC ACID [Concomitant]
  7. ESTRADIOL [Concomitant]
  8. TENORETIC 100 [Concomitant]
  9. POTASSIUM CHLORIDE [Concomitant]
  10. CALCIUM CARBONATE [Concomitant]
  11. MAGNESIUM CHLORIDE ANHYDROUS [Concomitant]

REACTIONS (5)
  - CHEST PAIN [None]
  - CONDITION AGGRAVATED [None]
  - HYPOAESTHESIA [None]
  - OEDEMA PERIPHERAL [None]
  - PARAESTHESIA [None]
